FAERS Safety Report 24970221 (Version 1)
Quarter: 2025Q1

REPORT INFORMATION
  Report Type: Spontaneous
  Country: US (occurrence: US)
  Receive Date: 20250214
  Receipt Date: 20250214
  Transmission Date: 20250409
  Serious: Yes (Other)
  Sender: BAYER HEALTHCARE PHARMACEUTICALS INC.
  Company Number: US-BAYER-2025A019927

PATIENT
  Age: 35 Year
  Sex: Female

DRUGS (1)
  1. MIRENA [Suspect]
     Active Substance: LEVONORGESTREL
     Dosage: 20?G/DAY
     Route: 015
     Dates: start: 20240101

REACTIONS (4)
  - Uterine perforation [Not Recovered/Not Resolved]
  - Pelvic pain [None]
  - Genital haemorrhage [None]
  - Complication of device removal [None]

NARRATIVE: CASE EVENT DATE: 20240101
